FAERS Safety Report 5926636-4 (Version None)
Quarter: 2008Q4

REPORT INFORMATION
  Report Type: 
  Country: None (occurrence: None)
  Receive Date: 20081022
  Receipt Date: 20081013
  Transmission Date: 20090506
  Serious: Yes (Death)
  Sender: FDA-Public Use
  Company Number: B0542731A

PATIENT
  Sex: Male

DRUGS (1)
  1. TOPOTECAN [Suspect]
     Route: 065

REACTIONS (4)
  - ACUTE RESPIRATORY DISTRESS SYNDROME [None]
  - DYSPNOEA [None]
  - PULMONARY TOXICITY [None]
  - RESPIRATORY FAILURE [None]
